FAERS Safety Report 5992590-2 (Version None)
Quarter: 2008Q4

REPORT INFORMATION
  Report Type: 
  Country: None (occurrence: None)
  Receive Date: 20081202
  Receipt Date: 20071019
  Transmission Date: 20090506
  Serious: Yes (Other)
  Sender: FDA-Public Use
  Company Number: WAES 0708USA01841

PATIENT
  Age: 75 Year
  Sex: Female
  Weight: 98.8842 kg

DRUGS (1)
  1. FOSAMAX [Suspect]
     Dosage: 70 MG/WKY/PO
     Route: 048
     Dates: start: 20020401, end: 20060715

REACTIONS (11)
  - ABDOMINAL PAIN [None]
  - ARTERIOVENOUS MALFORMATION [None]
  - CEREBRAL ATROPHY [None]
  - FALL [None]
  - GASTRITIS [None]
  - HAEMORRHOIDS [None]
  - HAND FRACTURE [None]
  - HEAD INJURY [None]
  - HIATUS HERNIA [None]
  - IMPAIRED GASTRIC EMPTYING [None]
  - OSTEONECROSIS [None]
